FAERS Safety Report 24156866 (Version 1)
Quarter: 2024Q3

REPORT INFORMATION
  Report Type: Spontaneous
  Country: BR (occurrence: BR)
  Receive Date: 20240731
  Receipt Date: 20240731
  Transmission Date: 20241016
  Serious: Yes (Other)
  Sender: AMGEN
  Company Number: BR-AMGEN-BRASP2024149632

PATIENT
  Age: 84 Year
  Sex: Female

DRUGS (1)
  1. PROLIA [Suspect]
     Active Substance: DENOSUMAB
     Indication: Osteoporosis
     Dosage: UNK, Q6MO, 1 TIME EVERY 6 MONTHS
     Route: 058
     Dates: start: 20230804

REACTIONS (2)
  - Pneumonia [Not Recovered/Not Resolved]
  - Spinal pain [Not Recovered/Not Resolved]
